FAERS Safety Report 8288990-0 (Version None)
Quarter: 2012Q2

REPORT INFORMATION
  Report Type: 
  Country: None (occurrence: None)
  Receive Date: 20120417
  Receipt Date: 20120405
  Transmission Date: 20120825
  Serious: Yes (Hospitalization)
  Sender: FDA-Public Use
  Company Number: CA-JNJFOC-20111211268

PATIENT
  Sex: Female
  Weight: 60 kg

DRUGS (4)
  1. REMICADE [Suspect]
     Indication: CROHN'S DISEASE
     Route: 042
     Dates: start: 20060321
  2. REMICADE [Suspect]
     Dosage: 44TH INFUSION
     Route: 042
     Dates: start: 20111110
  3. VITAMIN B-12 [Concomitant]
     Route: 065
  4. REMICADE [Suspect]
     Route: 042
     Dates: start: 20120131

REACTIONS (3)
  - CELLULITIS [None]
  - EAR PAIN [None]
  - DIARRHOEA [None]
